FAERS Safety Report 7864077-3 (Version None)
Quarter: 2011Q4

REPORT INFORMATION
  Report Type: 
  Country: None (occurrence: None)
  Receive Date: 20111028
  Receipt Date: 20111020
  Transmission Date: 20120403
  Serious: Yes (Disabling, Other)
  Sender: FDA-Public Use
  Company Number: US-JNJFOC-20100908992

PATIENT
  Sex: Male
  Weight: 96.16 kg

DRUGS (5)
  1. LEVAQUIN [Suspect]
     Indication: GALLBLADDER DISORDER
     Route: 048
     Dates: start: 20090901, end: 20090901
  2. LEVAQUIN [Suspect]
     Indication: CHOLECYSTITIS ACUTE
     Route: 048
     Dates: start: 20090901, end: 20090901
  3. LEVAQUIN [Suspect]
     Indication: BACTERIAL INFECTION
     Route: 048
  4. DILTIAZEM HCL [Concomitant]
     Indication: HYPERTENSION
     Route: 048
  5. BENICAR [Concomitant]
     Indication: HYPERTENSION
     Route: 048

REACTIONS (11)
  - JOINT SWELLING [None]
  - FOOT DEFORMITY [None]
  - ARTHRALGIA [None]
  - TENDON RUPTURE [None]
  - GAIT DISTURBANCE [None]
  - TENDON INJURY [None]
  - OEDEMA [None]
  - BACK DISORDER [None]
  - TENDON DISORDER [None]
  - OEDEMA PERIPHERAL [None]
  - TENDON PAIN [None]
